FAERS Safety Report 16478521 (Version 4)
Quarter: 2020Q1

REPORT INFORMATION
  Report Type: Spontaneous
  Country: US (occurrence: US)
  Receive Date: 20190626
  Receipt Date: 20200106
  Transmission Date: 20200409
  Serious: Yes (Hospitalization, Other)
  Sender: FDA-Public Use
  Company Number: US-PFIZER INC-2019271757

PATIENT
  Age: 15 Year
  Sex: Male
  Weight: 52 kg

DRUGS (13)
  1. VITAMIN D3 [Concomitant]
     Active Substance: CHOLECALCIFEROL
     Dosage: 2000 IU, DAILY
     Route: 048
  2. GENOTROPIN [Suspect]
     Active Substance: SOMATROPIN
     Indication: HYPOPITUITARISM
     Dosage: 2 MG, DAILY (Q HS)
     Route: 058
     Dates: start: 20190311, end: 20190819
  3. BENTYL [Concomitant]
     Active Substance: DICYCLOMINE HYDROCHLORIDE
     Dosage: 20 MG, 2X/DAY [FOR 7 DAYS]
     Route: 048
     Dates: start: 20190814, end: 20190821
  4. GENOTROPIN [Suspect]
     Active Substance: SOMATROPIN
     Indication: GROWTH RETARDATION
     Dosage: 2 MG, DAILY
     Route: 058
     Dates: start: 201903
  5. TYLENOL [Concomitant]
     Active Substance: ACETAMINOPHEN
     Dosage: 325 MG, UNK
     Route: 048
     Dates: start: 20190818
  6. ASMANEX [Concomitant]
     Active Substance: MOMETASONE FUROATE
     Dosage: 220 UG, 1X/DAY [1 PUFF, ORAL, EVERY EVENING]
     Route: 048
  7. ALIGN [Concomitant]
     Active Substance: BIFIDOBACTERIUM LONGUM SUBSP. INFANTIS
     Dosage: 4 MG, DAILY
     Route: 048
  8. GENOTROPIN [Suspect]
     Active Substance: SOMATROPIN
     Indication: GROWTH HORMONE DEFICIENCY
     Dosage: 2 MG, DAILY
     Dates: start: 20190818, end: 20190819
  9. PRILOSEC [Concomitant]
     Active Substance: OMEPRAZOLE MAGNESIUM
     Dosage: 40 MG, UNK
     Dates: start: 20190818
  10. MIRALAX [Concomitant]
     Active Substance: POLYETHYLENE GLYCOL 3350
     Dosage: UNK, 2X/DAY [17 GRAM/DOSE POWDER/SIG: 17 GRAMS]
  11. BENTYL [Concomitant]
     Active Substance: DICYCLOMINE HYDROCHLORIDE
     Dosage: 20 MG, UNK
     Route: 048
     Dates: start: 20190814
  12. GENOTROPIN [Suspect]
     Active Substance: SOMATROPIN
     Dosage: 2 MG, DAILY (SEVEN DAYS A WEEK)
     Route: 058
  13. BENTYL [Concomitant]
     Active Substance: DICYCLOMINE HYDROCHLORIDE
     Dosage: 20 MG, 2X/DAY
     Route: 048

REACTIONS (10)
  - Nausea [Unknown]
  - Dyspepsia [Unknown]
  - Malaise [Unknown]
  - Bile duct obstruction [Recovered/Resolved]
  - Diarrhoea [Not Recovered/Not Resolved]
  - Pancreas divisum [Recovered/Resolved]
  - Fatigue [Recovered/Resolved]
  - Headache [Recovered/Resolved]
  - Pancreatitis acute [Unknown]
  - Abdominal pain [Recovered/Resolved]

NARRATIVE: CASE EVENT DATE: 2019
